FAERS Safety Report 8192941-7 (Version None)
Quarter: 2012Q1

REPORT INFORMATION
  Report Type: 
  Country: None (occurrence: None)
  Receive Date: 20120221
  Receipt Date: 20111021
  Transmission Date: 20120608
  Serious: No
  Sender: FDA-Public Use
  Company Number: 044110

PATIENT
  Sex: Male

DRUGS (2)
  1. LACOSAMIDE [Suspect]
  2. ILANTIN /00017401/ [Concomitant]

REACTIONS (1)
  - RASH GENERALISED [None]
